FAERS Safety Report 8967342 (Version 1)
Quarter: 2012Q4

REPORT INFORMATION
  Report Type: Report from Study
  Country: AU (occurrence: AU)
  Receive Date: 20121214
  Receipt Date: 20121214
  Transmission Date: 20130627
  Serious: Yes (Hospitalization)
  Sender: FDA-Public Use
  Company Number: AU-GENZYME-FABR-1002905

PATIENT
  Age: 46 Year
  Sex: Male
  Weight: 74 kg

DRUGS (20)
  1. FABRAZYME [Suspect]
     Indication: FABRY^S DISEASE
     Dosage: 20 mg, q2w
     Route: 042
  2. WARFARIN [Concomitant]
     Indication: THROMBOSIS PROPHYLAXIS
     Dosage: 1 mg, UNK
  3. WARFARIN [Concomitant]
     Dosage: 2 mg, UNK
  4. IRBESARTAN [Concomitant]
     Indication: CARDIAC MURMUR FUNCTIONAL
     Dosage: 75 mg, UNK
  5. VERAPAMIL [Concomitant]
     Indication: HYPERTENSION
     Dosage: 180 mg, UNK
  6. VERAPAMIL [Concomitant]
     Indication: HEART RATE
  7. FRUSEMIDE [Concomitant]
     Indication: DIURETIC THERAPY
     Dosage: 60 mg, UNK
  8. DILANTIN [Concomitant]
     Indication: NEURALGIA
     Dosage: 100 mg, UNK
  9. CALCITRIOL [Concomitant]
     Indication: BLOOD CALCIUM DECREASED
     Dosage: 25 mcg, UNK
  10. AMITRIPTYLINE [Concomitant]
     Indication: PAIN
     Dosage: 25 mg, qdx3
  11. COLECALCIFEROL [Concomitant]
     Indication: BLOOD CALCIUM DECREASED
     Dosage: 25 mcg, UNK
  12. CITALOPRAM [Concomitant]
     Indication: DEPRESSED MOOD
     Dosage: 20 mg, UNK
  13. OMEPRAZOLE [Concomitant]
     Indication: PROPHYLAXIS
     Dosage: 20 mg, bid
  14. FOLIC ACID [Concomitant]
     Indication: SUPPLEMENTATION THERAPY
     Dosage: 5 mg, UNK
  15. GABAPENTIN [Concomitant]
     Indication: NEURALGIA
     Dosage: 600 mg, qdx3
  16. PARACETAMOL [Concomitant]
     Indication: PAIN
     Dosage: 500 mg, qid
  17. METHADONE [Concomitant]
     Indication: PAIN
     Dosage: 10 mg x 4, bid
  18. FENTANYL [Concomitant]
     Indication: PAIN
     Dosage: 100 mcg, UNK
  19. SODIUM FUSIDATE [Concomitant]
     Indication: ANTIBIOTIC THERAPY
     Dosage: 250 mg, qid
  20. RIFAMPICIN [Concomitant]
     Indication: ANTIBIOTIC THERAPY
     Dosage: 300 mg, bid

REACTIONS (1)
  - Osteomyelitis [Not Recovered/Not Resolved]
